FAERS Safety Report 15240626 (Version 2)
Quarter: 2018Q3

REPORT INFORMATION
  Report Type: Spontaneous
  Country: GB (occurrence: GB)
  Receive Date: 20180804
  Receipt Date: 20180904
  Transmission Date: 20181010
  Serious: Yes (Death, Congenital Anomaly, Other)
  Sender: FDA-Public Use
  Company Number: GB-AUROBINDO-AUR-APL-2012-05133

PATIENT
  Sex: Female
  Weight: 3.41 kg

DRUGS (9)
  1. ZIDOVUDINE CAPSULES 100MG [Suspect]
     Active Substance: ZIDOVUDINE
     Indication: ANTIRETROVIRAL THERAPY
     Dosage: UNK
     Route: 064
     Dates: start: 20090318
  2. DARUNAVIR W/RITONAVIR [Concomitant]
     Active Substance: DARUNAVIR\RITONAVIR
     Indication: PRODUCT USED FOR UNKNOWN INDICATION
     Dosage: 1200 MILLIGRAM (600 MG, BID)
     Route: 064
     Dates: start: 20090310
  3. ISENTRESS [Suspect]
     Active Substance: RALTEGRAVIR POTASSIUM
     Dosage: 400 MG, BID
     Route: 064
     Dates: start: 20090319
  4. PREZISTA [Suspect]
     Active Substance: DARUNAVIR ETHANOLATE
     Dosage: UNK
     Route: 064
  5. NORVIR [Suspect]
     Active Substance: RITONAVIR
     Indication: ANTIRETROVIRAL THERAPY
     Dosage: UNK
     Route: 064
     Dates: start: 20090310
  6. PREZISTA [Suspect]
     Active Substance: DARUNAVIR ETHANOLATE
     Indication: ANTIRETROVIRAL THERAPY
     Dosage: 600 MG, BID
     Route: 064
     Dates: start: 20090310
  7. TRUVADA [Suspect]
     Active Substance: EMTRICITABINE\TENOFOVIR DISOPROXIL FUMARATE
     Indication: ANTIRETROVIRAL THERAPY
     Dosage: UNK
     Route: 064
  8. ISENTRESS [Suspect]
     Active Substance: RALTEGRAVIR POTASSIUM
     Indication: HIV INFECTION
     Dosage: UNK
     Route: 064
     Dates: start: 20090310
  9. ISENTRESS [Suspect]
     Active Substance: RALTEGRAVIR POTASSIUM
     Dosage: UNK
     Route: 064

REACTIONS (19)
  - Neonatal respiratory arrest [Fatal]
  - Large for dates baby [Unknown]
  - Aortic valve disease [Fatal]
  - Congenital heart valve disorder [Not Recovered/Not Resolved]
  - Congenital aortic anomaly [Unknown]
  - Sudden infant death syndrome [Fatal]
  - Cardiac arrest [Fatal]
  - Congenital pulmonary valve disorder [Not Recovered/Not Resolved]
  - Pulmonary valve sclerosis [Fatal]
  - Aortic valve sclerosis [Fatal]
  - Congenital anomaly in offspring [Fatal]
  - Maternal drugs affecting foetus [Unknown]
  - Apnoea [Not Recovered/Not Resolved]
  - Cardiac murmur [Not Recovered/Not Resolved]
  - Complication of delivery [Unknown]
  - Maternal exposure timing unspecified [Unknown]
  - Ventricular hypertrophy [Not Recovered/Not Resolved]
  - Foetal exposure during pregnancy [Recovered/Resolved]
  - Respiratory arrest [Fatal]

NARRATIVE: CASE EVENT DATE: 20090610
